FAERS Safety Report 16692396 (Version 4)
Quarter: 2020Q4

REPORT INFORMATION
  Report Type: Spontaneous
  Country: US (occurrence: US)
  Receive Date: 20190812
  Receipt Date: 20201014
  Transmission Date: 20210113
  Serious: Yes (Other)
  Sender: FDA-Public Use
  Company Number: US-PFIZER INC-2019046428

PATIENT
  Age: 85 Year
  Sex: Female
  Weight: 54.43 kg

DRUGS (18)
  1. FOLIC ACID. [Concomitant]
     Active Substance: FOLIC ACID
     Indication: VITAMIN SUPPLEMENTATION
     Dosage: 1 DF
     Route: 048
  2. LEVOTHYROXINE. [Concomitant]
     Active Substance: LEVOTHYROXINE
     Indication: HYPOTHYROIDISM
     Dosage: 100 UG, 1X/DAY (6 DAYS A WEEK)
     Route: 048
  3. CYMBALTA [Concomitant]
     Active Substance: DULOXETINE HYDROCHLORIDE
     Indication: FIBROMYALGIA
  4. ELIQUIS [Concomitant]
     Active Substance: APIXABAN
     Indication: ANTICOAGULANT THERAPY
  5. ALLOPURINOL. [Concomitant]
     Active Substance: ALLOPURINOL
     Indication: GOUT
     Dosage: 100 MG, 2X/DAY
     Route: 048
  6. IPRATROPIUM BROMIDE. [Concomitant]
     Active Substance: IPRATROPIUM BROMIDE
     Indication: RHINORRHOEA
     Dosage: UNK, 2X/DAY
     Route: 045
  7. METHOTREXATE. [Concomitant]
     Active Substance: METHOTREXATE
     Indication: RHEUMATOID ARTHRITIS
     Dosage: 10 MG (2.5MG 4 TABLETS), WEEKLY
     Route: 048
  8. OLANZAPINE. [Concomitant]
     Active Substance: OLANZAPINE
     Dosage: 2.5 MG, 1X/DAY
     Route: 048
  9. OMEPRAZOLE. [Concomitant]
     Active Substance: OMEPRAZOLE
     Indication: ABDOMINAL DISCOMFORT
     Dosage: 20 MG, 1X/DAY
     Route: 048
  10. RESTASIS [Concomitant]
     Active Substance: CYCLOSPORINE
     Indication: DRY EYE
     Dosage: 0.05 %, 2X/DAY, (1 DROP IN EACH EYE TWICE A DAY)
     Route: 061
  11. XELJANZ XR [Suspect]
     Active Substance: TOFACITINIB CITRATE
     Indication: RHEUMATOID ARTHRITIS
     Dosage: 11 MG, 1X/DAY
     Dates: start: 2017
  12. CYMBALTA [Concomitant]
     Active Substance: DULOXETINE HYDROCHLORIDE
     Indication: DEPRESSION
     Dosage: 60 MG, 1X/DAY
     Route: 048
  13. COREG [Concomitant]
     Active Substance: CARVEDILOL
     Indication: CARDIAC DISORDER
     Dosage: 25 MG, 2X/DAY
     Route: 048
  14. ELIQUIS [Concomitant]
     Active Substance: APIXABAN
     Indication: CARDIAC DISORDER
     Dosage: 2.5 MG, 2X/DAY
     Route: 048
  15. POTASSIUM [Concomitant]
     Active Substance: POTASSIUM
     Indication: MINERAL SUPPLEMENTATION
     Dosage: 25 MEQ, 1X/DAY
     Route: 048
  16. PROLIA [Concomitant]
     Active Substance: DENOSUMAB
     Indication: BONE DISORDER
     Dosage: 60 MG, (EVERY 6 MONTHS)
  17. SOTALOL. [Concomitant]
     Active Substance: SOTALOL
     Indication: CARDIAC DISORDER
     Dosage: 80 MG, DAILY, (80MG 0.5 TABLETS IN THE MORNING AND A 0.5 TABLET IN THE EVENING)
  18. VITAMIN D3 [Concomitant]
     Active Substance: CHOLECALCIFEROL
     Indication: VITAMIN SUPPLEMENTATION
     Dosage: 1000 IU, 1X/DAY
     Route: 048

REACTIONS (6)
  - Cough [Not Recovered/Not Resolved]
  - Weight decreased [Unknown]
  - Arthralgia [Not Recovered/Not Resolved]
  - Pneumonia [Unknown]
  - Aspiration [Unknown]
  - Blister [Unknown]

NARRATIVE: CASE EVENT DATE: 2018
